FAERS Safety Report 20097513 (Version 1)
Quarter: 2021Q4

REPORT INFORMATION
  Report Type: Spontaneous
  Country: CA (occurrence: CA)
  Receive Date: 20211122
  Receipt Date: 20211122
  Transmission Date: 20220303
  Serious: Yes (Other)
  Sender: FDA-Public Use
  Company Number: CA-MLMSERVICE-20211104-3207354-1

PATIENT
  Age: 23 Year
  Sex: Male
  Weight: 75.283 kg

DRUGS (1)
  1. IBUPROFEN [Suspect]
     Active Substance: IBUPROFEN
     Indication: Pain in extremity
     Dosage: 800 MG, UNKNOWN

REACTIONS (1)
  - Haemorrhage [Unknown]
